FAERS Safety Report 9486055 (Version 1)
Quarter: 2013Q3

REPORT INFORMATION
  Report Type: Spontaneous
  Country: US (occurrence: None)
  Receive Date: 20130827
  Receipt Date: 20130827
  Transmission Date: 20140515
  Serious: Yes (Death, Hospitalization)
  Sender: FDA-Public Use
  Company Number: None

PATIENT
  Age: 67 Year
  Sex: Female
  Weight: 91.63 kg

DRUGS (2)
  1. ALLOPURINOL [Suspect]
     Indication: SWELLING
     Dosage: 1 PILL  ONCE DAILY  TAKEN BY MOUTH
     Route: 048
     Dates: start: 20120226, end: 20120420
  2. ALLOPURINOL [Suspect]
     Indication: BLOOD URIC ACID INCREASED
     Dosage: 1 PILL  ONCE DAILY  TAKEN BY MOUTH
     Route: 048
     Dates: start: 20120226, end: 20120420

REACTIONS (4)
  - Rash [None]
  - Swelling [None]
  - Stevens-Johnson syndrome [None]
  - Toxic epidermal necrolysis [None]
